FAERS Safety Report 8986446 (Version 2)
Quarter: 2013Q3

REPORT INFORMATION
  Report Type: Report from Study
  Country: DE (occurrence: DE)
  Receive Date: 20121226
  Receipt Date: 20130731
  Transmission Date: 20140515
  Serious: Yes (Other)
  Sender: FDA-Public Use
  Company Number: PHHY2012DE116439

PATIENT
  Sex: Female

DRUGS (8)
  1. FTY 720 [Suspect]
     Indication: MULTIPLE SCLEROSIS
     Dosage: 0.5 MG, QD
     Route: 048
  2. LAMOTRIGIN [Concomitant]
     Dosage: UNK UKN, UNK
  3. PREDNISOL [Concomitant]
  4. AZATHIOPRIN [Concomitant]
     Dosage: UNK UKN, UNK
     Dates: start: 20071015, end: 20110428
  5. REMICADE [Concomitant]
     Dosage: UNK UKN, UNK
     Dates: start: 201007, end: 20101026
  6. RAMIPRIL [Concomitant]
     Dosage: 2.5 MG, UNK
     Dates: start: 20100709
  7. METOPROLOL [Concomitant]
     Dosage: 17.5 MG, UNK
     Dates: start: 20100720
  8. EBASTIN [Concomitant]
     Dosage: 10 MG, UNK
     Dates: start: 20110429, end: 20111102

REACTIONS (1)
  - Enteritis [Not Recovered/Not Resolved]
